FAERS Safety Report 5963420-X (Version None)
Quarter: 2008Q4

REPORT INFORMATION
  Report Type: 
  Country: None (occurrence: None)
  Receive Date: 20081121
  Receipt Date: 20081121
  Transmission Date: 20090506
  Serious: No
  Sender: FDA-Public Use
  Company Number: None

PATIENT
  Age: 46 Year
  Sex: Male
  Weight: 92 kg

DRUGS (12)
  1. HEPARIN [Suspect]
     Indication: DEEP VEIN THROMBOSIS
     Dosage: 5000 UNITS SQ Q8 HRS
     Route: 058
     Dates: start: 20080801, end: 20080802
  2. HEPARIN [Suspect]
     Indication: PROPHYLAXIS
     Dosage: 5000 UNITS SQ Q8 HRS
     Route: 058
     Dates: start: 20080801, end: 20080802
  3. HEPARIN [Suspect]
     Dosage: CONTINUOUS INFUSION
     Dates: start: 20080802, end: 20080803
  4. SENNA [Concomitant]
  5. APAP TAB [Concomitant]
  6. MAALOX [Concomitant]
  7. MOM [Concomitant]
  8. RANITIDINE [Concomitant]
  9. DEXAMETHASONE [Concomitant]
  10. PHENYTOIN [Concomitant]
  11. INSULIN ASPART [Concomitant]
  12. LABETALOL HCL [Concomitant]

REACTIONS (1)
  - HEPARIN-INDUCED THROMBOCYTOPENIA [None]
